FAERS Safety Report 5578422-5 (Version None)
Quarter: 2007Q4

REPORT INFORMATION
  Report Type: 
  Country: None (occurrence: None)
  Receive Date: 20071231
  Receipt Date: 20071201
  Transmission Date: 20080405
  Serious: Yes (Other)
  Sender: FDA-Public Use
  Company Number: FR-PFIZER INC-2007107570

PATIENT
  Sex: Female

DRUGS (2)
  1. LYRICA [Suspect]
     Indication: NEURALGIA
     Dosage: DAILY DOSE:150MG
  2. CLONAZEPAM [Concomitant]

REACTIONS (13)
  - BLOOD TRIGLYCERIDES [None]
  - FATIGUE [None]
  - FOOD ALLERGY [None]
  - HAEMORRHAGE [None]
  - HYPERACUSIS [None]
  - INSOMNIA [None]
  - NERVOUSNESS [None]
  - PARAESTHESIA [None]
  - PRURITUS [None]
  - RASH MACULAR [None]
  - SOMNOLENCE [None]
  - VULVOVAGINAL PRURITUS [None]
  - WHITE BLOOD CELL COUNT [None]
